FAERS Safety Report 18426219 (Version 1)
Quarter: 2020Q4

REPORT INFORMATION
  Report Type: Spontaneous
  Country: US (occurrence: US)
  Receive Date: 20201026
  Receipt Date: 20201026
  Transmission Date: 20210114
  Serious: No
  Sender: FDA-Public Use
  Company Number: None

PATIENT
  Age: 59 Year
  Sex: Female
  Weight: 76 kg

DRUGS (9)
  1. CONVALESCENT PLASMA [Concomitant]
     Active Substance: HUMAN PLASMA
     Dates: start: 20201022, end: 20201022
  2. DEXAMETHASONE 6 MG PO DAILY [Concomitant]
     Dates: start: 20201020
  3. ENOXAPARIN 40 MG SQ DAILY [Concomitant]
     Dates: start: 20201022
  4. HEPARIN 5000 UNITS SQ Q8H [Concomitant]
     Dates: start: 20201020, end: 20201022
  5. GUAIFENESIN 600 MG SR BID [Concomitant]
     Dates: start: 20201022
  6. ACETAMINOPHEN 650 MG PO Q4H PRN [Concomitant]
     Dates: start: 20201021, end: 20201023
  7. BENZONATATE 200 MG PO TID PRN [Concomitant]
     Dates: start: 20201021, end: 20201021
  8. ALPRAZOLAM 0.25 MG PO Q6H PRN [Concomitant]
     Dates: start: 20201022, end: 20201022
  9. REMDESIVIR. [Suspect]
     Active Substance: REMDESIVIR
     Indication: COVID-19
     Route: 042
     Dates: start: 20201021, end: 20201024

REACTIONS (2)
  - Bradycardia [None]
  - Therapy cessation [None]

NARRATIVE: CASE EVENT DATE: 20201023
